FAERS Safety Report 8310466-2 (Version None)
Quarter: 2012Q2

REPORT INFORMATION
  Report Type: 
  Country: None (occurrence: None)
  Receive Date: 20120425
  Receipt Date: 20120410
  Transmission Date: 20120825
  Serious: Yes (Disabling, Other)
  Sender: FDA-Public Use
  Company Number: GB-ROCHE-1031700

PATIENT
  Sex: Female
  Weight: 74 kg

DRUGS (6)
  1. MABTHERA [Suspect]
     Indication: RHEUMATOID ARTHRITIS
     Dosage: FREQUENCY: PER LICENSE.
     Route: 042
     Dates: start: 20101222, end: 20110831
  2. ETANERCEPT [Suspect]
     Indication: RHEUMATOID ARTHRITIS
     Route: 065
     Dates: start: 20050101, end: 20110426
  3. TOCILIZUMAB [Concomitant]
  4. ASPIRIN [Concomitant]
     Indication: MYOCARDIAL ISCHAEMIA
     Dosage: FREQUENCY: OD
     Route: 048
     Dates: start: 19930101
  5. AMITRIPTYLINE HCL [Concomitant]
  6. ATENOLOL [Concomitant]
     Indication: MYOCARDIAL ISCHAEMIA
     Dosage: FREQUENCY: OD
     Route: 048
     Dates: start: 19930101

REACTIONS (4)
  - WHITE BLOOD CELL COUNT DECREASED [None]
  - TINNITUS [None]
  - INCORRECT DRUG ADMINISTRATION DURATION [None]
  - NO THERAPEUTIC RESPONSE [None]
